FAERS Safety Report 4500086-X (Version None)
Quarter: 2004Q4

REPORT INFORMATION
  Report Type: 
  Country: None (occurrence: None)
  Receive Date: 20041110
  Receipt Date: 20041022
  Transmission Date: 20050328
  Serious: Yes (Other)
  Sender: FDA-Public Use
  Company Number: C-04-0058

PATIENT
  Age: 78 Year
  Sex: Female
  Weight: 58.9676 kg

DRUGS (5)
  1. CHLORAL HYDRATE SYRUP, USP, 500 MG/5 ML, MGP PRODUCT CODE: 8533 [Suspect]
     Indication: INSOMNIA
     Dosage: 2 TEASPOONS ORALLY
     Route: 048
     Dates: start: 20041018, end: 20041019
  2. HYDROCHLOROTHIAZIDE [Concomitant]
  3. NORVASC [Concomitant]
  4. BENICAR [Concomitant]
  5. ATIVAN [Concomitant]

REACTIONS (5)
  - ADVERSE EVENT [None]
  - DRUG INEFFECTIVE [None]
  - GLOSSODYNIA [None]
  - HOARSENESS [None]
  - THROAT IRRITATION [None]
